FAERS Safety Report 10216142 (Version 1)
Quarter: 2014Q2

REPORT INFORMATION
  Report Type: Spontaneous
  Country: US (occurrence: US)
  Receive Date: 20140604
  Receipt Date: 20140604
  Transmission Date: 20141212
  Serious: No
  Sender: FDA-Public Use
  Company Number: US-ENDO PHARMACEUTICALS INC.-SPLN20140022

PATIENT
  Age: 10 Year
  Sex: Male
  Weight: 51.7 kg

DRUGS (3)
  1. SUPPRELIN LA [Suspect]
     Indication: PRECOCIOUS PUBERTY
     Route: 058
     Dates: start: 201401
  2. HALOPERIDOL TABLETS 0.5MG [Concomitant]
     Indication: TOURETTE^S DISORDER
     Route: 048
     Dates: start: 20131008
  3. TOPIRAMATE [Concomitant]
     Indication: MIGRAINE WITHOUT AURA
     Route: 048
     Dates: start: 20140113

REACTIONS (2)
  - Abnormal behaviour [Not Recovered/Not Resolved]
  - Tic [Not Recovered/Not Resolved]
